FAERS Safety Report 20749487 (Version 5)
Quarter: 2022Q3

REPORT INFORMATION
  Report Type: Report from Study
  Country: CA (occurrence: CA)
  Receive Date: 20220426
  Receipt Date: 20220701
  Transmission Date: 20221027
  Serious: Yes (Hospitalization, Other)
  Sender: FDA-Public Use
  Company Number: CA-NOVARTISPH-NVSC2021CA043285

PATIENT
  Age: 55 Year
  Sex: Female

DRUGS (5)
  1. MAYZENT [Suspect]
     Active Substance: SIPONIMOD
     Indication: Secondary progressive multiple sclerosis
     Dosage: UNK
     Route: 048
     Dates: start: 20210106
  2. MAYZENT [Suspect]
     Active Substance: SIPONIMOD
     Dosage: 2 MG (DIE FOR 1 MONTH X 12 REPEATS)
     Route: 048
  3. MAYZENT [Suspect]
     Active Substance: SIPONIMOD
     Dosage: 1 MG, QD (DIE FOR 1 MONTH X 12 REPEATS)
     Route: 065
  4. MAYZENT [Suspect]
     Active Substance: SIPONIMOD
     Dosage: UNK
     Route: 048
     Dates: start: 20220401
  5. MAYZENT [Suspect]
     Active Substance: SIPONIMOD
     Dosage: UNK
     Route: 065
     Dates: end: 20220617

REACTIONS (14)
  - Multiple sclerosis relapse [Unknown]
  - Hypoaesthesia [Unknown]
  - COVID-19 [Unknown]
  - Expanded disability status scale score increased [Unknown]
  - Peripheral coldness [Unknown]
  - Exercise tolerance decreased [Unknown]
  - Hepatic enzyme abnormal [Unknown]
  - Fine motor skill dysfunction [Unknown]
  - Muscular weakness [Unknown]
  - Limb discomfort [Unknown]
  - Peripheral swelling [Unknown]
  - Product dose omission issue [Unknown]
  - Product packaging difficult to open [Unknown]
  - Drug ineffective [Unknown]

NARRATIVE: CASE EVENT DATE: 20220401
